FAERS Safety Report 22304074 (Version 2)
Quarter: 2023Q2

REPORT INFORMATION
  Report Type: Spontaneous
  Country: US (occurrence: US)
  Receive Date: 20230510
  Receipt Date: 20230516
  Transmission Date: 20230721
  Serious: No
  Sender: FDA-Public Use
  Company Number: US-PFIZER INC-PV202200127052

PATIENT
  Age: 77 Year
  Sex: Female

DRUGS (1)
  1. IBRANCE [Suspect]
     Active Substance: PALBOCICLIB
     Dosage: 75 MG, CYCLIC (14 DAYS AND THEN OFF FOR 14 DAYS/WITH FOOD DAILY ON DAYS 1-14 EVERY 28 DAYS)
     Route: 048

REACTIONS (4)
  - Malaise [Unknown]
  - Cough [Unknown]
  - Off label use [Unknown]
  - Product use issue [Unknown]
